FAERS Safety Report 5606835-1 (Version None)
Quarter: 2008Q1

REPORT INFORMATION
  Report Type: 
  Country: None (occurrence: None)
  Receive Date: 20080129
  Receipt Date: 20080107
  Transmission Date: 20080703
  Serious: No
  Sender: FDA-Public Use
  Company Number: US-BOEHRINGER INGELHEIM GMBH, GERMANY-2007-BP-25972BP

PATIENT
  Age: 70 Year
  Sex: Male
  Weight: 108 kg

DRUGS (20)
  1. FLOMAX [Suspect]
     Route: 048
     Dates: start: 20071113
  2. ASPIRIN [Concomitant]
  3. ZOCOR [Concomitant]
  4. FOLIC ACID [Concomitant]
  5. ASCORBIC ACID [Concomitant]
  6. VITAMIN B COMPLEX CAP [Concomitant]
  7. NITROGLYCERIN [Concomitant]
  8. ATENOLOL [Concomitant]
     Dates: start: 20070826
  9. PRINIVIL [Concomitant]
     Dates: start: 20070826
  10. DIGOXIN [Concomitant]
     Dates: start: 20030523
  11. ISOSORBIDE MN [Concomitant]
  12. TORSEMIDE [Concomitant]
     Dates: start: 20040825
  13. SPIRIVA [Concomitant]
     Route: 055
     Dates: start: 20050511
  14. COMBIVENT [Concomitant]
     Route: 055
     Dates: start: 20050511
  15. ASTELIN NS [Concomitant]
     Dates: start: 20050511
  16. ADVAIR DISKUS 100/50 [Concomitant]
     Dates: start: 20051001
  17. ALLOPURINOL [Concomitant]
     Dates: start: 20070313
  18. TOBRADEX [Concomitant]
     Dates: start: 20070312
  19. FLONASE [Concomitant]
     Route: 045
     Dates: start: 20070312
  20. MINOXIDIL [Concomitant]
     Dates: start: 20071113

REACTIONS (2)
  - NASAL CONGESTION [None]
  - PHARMACEUTICAL PRODUCT COMPLAINT [None]
